FAERS Safety Report 21676099 (Version 1)
Quarter: 2022Q4

REPORT INFORMATION
  Report Type: Spontaneous
  Country: NL (occurrence: NL)
  Receive Date: 20221202
  Receipt Date: 20221202
  Transmission Date: 20230113
  Serious: Yes (Disabling, Other)
  Sender: FDA-Public Use
  Company Number: NL-002147023-NVSC2022NL275621

PATIENT
  Age: 75 Year
  Sex: Female
  Weight: 55 kg

DRUGS (3)
  1. APIXABAN [Suspect]
     Active Substance: APIXABAN
     Indication: Pulmonary embolism
     Dosage: 2.5 MG, BID
     Route: 048
     Dates: start: 20220913, end: 20221015
  2. ACE [Concomitant]
     Indication: Product used for unknown indication
     Dosage: 50 MG/ML
     Route: 065
  3. TRIAMCINOLONE [Concomitant]
     Active Substance: TRIAMCINOLONE
     Indication: Product used for unknown indication
     Dosage: UNK
     Route: 048

REACTIONS (3)
  - Haematochezia [Recovered/Resolved]
  - Alopecia [Unknown]
  - Mouth haemorrhage [Recovered/Resolved]
